FAERS Safety Report 7262572-1 (Version None)
Quarter: 2011Q1

REPORT INFORMATION
  Report Type: 
  Country: None (occurrence: None)
  Receive Date: 20110130
  Receipt Date: 20101130
  Transmission Date: 20110831
  Serious: No
  Sender: FDA-Public Use
  Company Number: US-ABBOTT-10P-163-0688398-00

PATIENT
  Sex: Female
  Weight: 103.51 kg

DRUGS (11)
  1. LIPITOR [Concomitant]
     Indication: HYPERLIPIDAEMIA
  2. LISINOPRIL [Concomitant]
     Indication: HYPERTENSION
  3. LEVOTHYROXINE SODIUM [Concomitant]
     Indication: HYPOTHYROIDISM
  4. HUMIRA [Suspect]
     Indication: PSORIASIS
     Dates: start: 20090101, end: 20100901
  5. WELLBUTRIN [Concomitant]
     Indication: DEPRESSION
  6. ADDARALL [Concomitant]
     Indication: ATTENTION DEFICIT/HYPERACTIVITY DISORDER
  7. NEFAZODONE HCL [Concomitant]
     Indication: DEPRESSION
  8. METFORMIN [Concomitant]
     Indication: DIABETES MELLITUS
  9. HUMALOG [Concomitant]
     Indication: DIABETES MELLITUS
  10. PREVACID [Concomitant]
     Indication: GASTRIC DISORDER
  11. CLONAZEPAM [Concomitant]
     Indication: ANXIETY

REACTIONS (2)
  - NASOPHARYNGITIS [None]
  - DECUBITUS ULCER [None]
